FAERS Safety Report 10530090 (Version 1)
Quarter: 2014Q4

REPORT INFORMATION
  Report Type: Spontaneous
  Country: JP (occurrence: None)
  Receive Date: 20141017
  Receipt Date: 20141017
  Transmission Date: 20150528
  Serious: Yes (Hospitalization)
  Sender: FDA-Public Use
  Company Number: JP2014GSK004271

PATIENT
  Age: 22 Year
  Sex: Male

DRUGS (1)
  1. PAROXETINE [Suspect]
     Active Substance: PAROXETINE\PAROXETINE HYDROCHLORIDE
     Indication: MAJOR DEPRESSION

REACTIONS (5)
  - Mania [None]
  - Grandiosity [None]
  - Elevated mood [None]
  - Hallucination, auditory [None]
  - Aggression [None]
